FAERS Safety Report 23203202 (Version 1)
Quarter: 2023Q4

REPORT INFORMATION
  Report Type: Spontaneous
  Country: US (occurrence: None)
  Receive Date: 20231119
  Receipt Date: 20231119
  Transmission Date: 20240110
  Serious: No
  Sender: FDA-Public Use
  Company Number: None

PATIENT
  Age: 59 Year
  Sex: Female
  Weight: 67.5 kg

DRUGS (5)
  1. SYSTANE COMPLETE [Suspect]
     Active Substance: PROPYLENE GLYCOL
     Indication: Dry eye
     Dosage: OTHER QUANTITY : 2 DROP(S);?FREQUENCY : AS NEEDED;?
     Route: 047
     Dates: start: 20231112, end: 20231119
  2. SYSTANE COMPLETE [Suspect]
     Active Substance: PROPYLENE GLYCOL
     Indication: Hypersensitivity
  3. SYSTANE COMPLETE [Suspect]
     Active Substance: PROPYLENE GLYCOL
     Indication: Eye irritation
  4. CRESTOR [Concomitant]
     Active Substance: ROSUVASTATIN CALCIUM
  5. LASTACAFT [Concomitant]
     Active Substance: ALCAFTADINE

REACTIONS (4)
  - Periorbital swelling [None]
  - Hypersensitivity [None]
  - Vision blurred [None]
  - Ocular hyperaemia [None]

NARRATIVE: CASE EVENT DATE: 20231117
